FAERS Safety Report 20840938 (Version 1)
Quarter: 2022Q2

REPORT INFORMATION
  Report Type: Spontaneous
  Country: US (occurrence: US)
  Receive Date: 20220517
  Receipt Date: 20220517
  Transmission Date: 20220720
  Serious: No
  Sender: FDA-Public Use
  Company Number: US-BAYER-2022A067014

PATIENT
  Age: 2 Month

DRUGS (1)
  1. VITRAKVI [Suspect]
     Active Substance: LAROTRECTINIB
     Indication: Congenital fibrosarcoma

REACTIONS (3)
  - Growth accelerated [None]
  - Weight increased [None]
  - Body height increased [None]
